FAERS Safety Report 5712986-3 (Version None)
Quarter: 2008Q2

REPORT INFORMATION
  Report Type: 
  Country: None (occurrence: None)
  Receive Date: 20080418
  Receipt Date: 20080407
  Transmission Date: 20081010
  Serious: Yes (Other)
  Sender: FDA-Public Use
  Company Number: 025978

PATIENT
  Age: 18 Year
  Sex: Female
  Weight: 49 kg

DRUGS (4)
  1. PLAN B [Suspect]
     Indication: CONTRACEPTION
     Dosage: 1 TABLET, ORAL
     Route: 048
     Dates: start: 20080407
  2. PLAN B [Suspect]
     Indication: EMERGENCY CARE
     Dosage: 1 TABLET, ORAL
     Route: 048
     Dates: start: 20080407
  3. LAMICTAL [Concomitant]
  4. ADDERALL (DEXAMFETAMINE SULFATE, AMFETAMINE SULFATE, AMFETAMINE ASPART [Concomitant]

REACTIONS (1)
  - HAEMATEMESIS [None]
